FAERS Safety Report 4919895-8 (Version None)
Quarter: 2006Q1

REPORT INFORMATION
  Report Type: 
  Country: None (occurrence: None)
  Receive Date: 20060223
  Receipt Date: 20050519
  Transmission Date: 20060701
  Serious: Yes (Hospitalization, Other)
  Sender: FDA-Public Use
  Company Number: DE-BRISTOL-MYERS SQUIBB COMPANY-12975439

PATIENT
  Age: 55 Year
  Sex: Female
  Weight: 67 kg

DRUGS (9)
  1. PACLITAXEL [Suspect]
     Indication: BREAST CANCER
     Route: 042
     Dates: start: 20050512, end: 20050512
  2. CYCLOPHOSPHAMIDE [Suspect]
     Indication: BREAST CANCER
     Route: 042
     Dates: start: 20050414, end: 20050414
  3. CAPECITABINE [Suspect]
     Indication: BREAST CANCER
     Route: 048
     Dates: start: 20050512
  4. EPIRUBICIN [Suspect]
     Indication: BREAST CANCER
     Route: 042
     Dates: start: 20050414, end: 20050414
  5. DARBEPOETIN ALFA [Concomitant]
     Route: 058
     Dates: start: 20050324, end: 20050727
  6. DEXAMETHASONE SODIUM PHOSPHATE [Concomitant]
     Route: 048
     Dates: start: 20050513, end: 20050528
  7. VERGENTAN [Concomitant]
     Route: 048
     Dates: start: 20050513, end: 20050528
  8. EPOETIN BETA [Concomitant]
     Route: 058
     Dates: start: 20050401, end: 20050414
  9. PEGFILGRASTIM [Concomitant]
     Route: 058
     Dates: start: 20050402, end: 20050415

REACTIONS (2)
  - GASTRITIS [None]
  - NEUTROPENIA [None]
